FAERS Safety Report 17133479 (Version 3)
Quarter: 2020Q2

REPORT INFORMATION
  Report Type: Report from Study
  Country: CL (occurrence: CL)
  Receive Date: 20191210
  Receipt Date: 20200527
  Transmission Date: 20200713
  Serious: Yes (Other)
  Sender: FDA-Public Use
  Company Number: CL-BRISTOL-MYERS SQUIBB COMPANY-BMS-2019-118001

PATIENT
  Age: 52 Year
  Sex: Female

DRUGS (1)
  1. ABATACEPT [Suspect]
     Active Substance: ABATACEPT
     Indication: RHEUMATOID ARTHRITIS
     Dosage: 125 MILLIGRAM, QWK, 4 UNITS
     Route: 058
     Dates: start: 20180730

REACTIONS (5)
  - Nasopharyngitis [Recovering/Resolving]
  - Pyrexia [Recovered/Resolved]
  - Oropharyngeal pain [Unknown]
  - Musculoskeletal pain [Recovered/Resolved]
  - Cataract [Unknown]

NARRATIVE: CASE EVENT DATE: 20191125
